FAERS Safety Report 8463454 (Version 2)
Quarter: 2012Q4

REPORT INFORMATION
  Report Type: 
  Country: US (occurrence: US)
  Receive Date: 20120316
  Receipt Date: 20121129
  Transmission Date: 20130627
  Serious: Yes (Death)
  Sender: FDA-Public Use
  Company Number: US-ROCHE-1049389

PATIENT
  Sex: Female
  Weight: 65.83 kg

DRUGS (3)
  1. ZELBORAF [Suspect]
     Indication: MALIGNANT MELANOMA
     Route: 048
     Dates: start: 20120112
  2. TEMODAR [Concomitant]
     Indication: MALIGNANT MELANOMA
     Route: 048
     Dates: start: 20120109, end: 20120127
  3. DEXAMETHASONE [Concomitant]
     Indication: MALIGNANT MELANOMA
     Route: 048
     Dates: start: 20111219

REACTIONS (1)
  - Metastatic malignant melanoma [Fatal]
